FAERS Safety Report 24307453 (Version 1)
Quarter: 2024Q3

REPORT INFORMATION
  Report Type: Spontaneous
  Country: US (occurrence: US)
  Receive Date: 20240911
  Receipt Date: 20240911
  Transmission Date: 20241017
  Serious: Yes (Other)
  Sender: BECTON DICKINSON
  Company Number: US-BECTON DICKINSON-US-BD-24-000011

PATIENT
  Age: 55 Year
  Sex: Female

DRUGS (1)
  1. CHLORAPREP WITH TINT [Suspect]
     Active Substance: CHLORHEXIDINE GLUCONATE\ISOPROPYL ALCOHOL
     Indication: Infection prophylaxis
     Dosage: UNK UNK, SINGLE
     Route: 061

REACTIONS (1)
  - Dermatitis contact [Recovered/Resolved]
